FAERS Safety Report 9786904 (Version 2)
Quarter: 2014Q1

REPORT INFORMATION
  Report Type: Report from Study
  Country: US (occurrence: US)
  Receive Date: 20131227
  Receipt Date: 20140107
  Transmission Date: 20141002
  Serious: Yes (Hospitalization, Other)
  Sender: FDA-Public Use
  Company Number: US-ABBVIE-13P-163-1182471-00

PATIENT
  Age: 56 Year
  Sex: Female
  Weight: 59.93 kg

DRUGS (3)
  1. HUMIRA [Suspect]
     Indication: CROHN^S DISEASE
     Dates: start: 20130920, end: 201311
  2. SULFASALAZINE [Concomitant]
     Indication: CROHN^S DISEASE
  3. LIPITOR [Concomitant]
     Indication: BLOOD CHOLESTEROL INCREASED

REACTIONS (4)
  - Aphagia [Unknown]
  - Abscess [Recovering/Resolving]
  - Intestinal resection [Recovering/Resolving]
  - Heart rate increased [Unknown]
